FAERS Safety Report 15106660 (Version 1)
Quarter: 2018Q3

REPORT INFORMATION
  Report Type: Spontaneous
  Country: US (occurrence: US)
  Receive Date: 20180704
  Receipt Date: 20180704
  Transmission Date: 20181010
  Serious: No
  Sender: FDA-Public Use
  Company Number: US-SA-2018SA178028

PATIENT
  Sex: Female

DRUGS (4)
  1. KEVZARA [Suspect]
     Active Substance: SARILUMAB
     Dosage: UNK
     Dates: start: 2018
  2. REMICADE [Concomitant]
     Active Substance: INFLIXIMAB
  3. ENBREL [Concomitant]
     Active Substance: ETANERCEPT
  4. CIMZIA [Concomitant]
     Active Substance: CERTOLIZUMAB PEGOL

REACTIONS (5)
  - Injection site erythema [Not Recovered/Not Resolved]
  - Injection site urticaria [Unknown]
  - Injection site pruritus [Unknown]
  - Injection site exfoliation [Not Recovered/Not Resolved]
  - Injection site pain [Not Recovered/Not Resolved]

NARRATIVE: CASE EVENT DATE: 2018
